FAERS Safety Report 17271349 (Version 2)
Quarter: 2020Q1

REPORT INFORMATION
  Report Type: Spontaneous
  Country: BR (occurrence: BR)
  Receive Date: 20200115
  Receipt Date: 20200116
  Transmission Date: 20200409
  Serious: Yes (Hospitalization)
  Sender: FDA-Public Use
  Company Number: BR-ABBVIE-20P-020-3231637-00

PATIENT
  Age: 41 Year
  Sex: Female

DRUGS (5)
  1. LONGACTIL [Concomitant]
     Active Substance: CHLORPROMAZINE HYDROCHLORIDE
     Indication: PRODUCT USED FOR UNKNOWN INDICATION
     Dosage: DOSE UNKNOWN BY REPORTER
     Route: 048
  2. HALOPERIDOL. [Concomitant]
     Active Substance: HALOPERIDOL
     Indication: PRODUCT USED FOR UNKNOWN INDICATION
     Dosage: DOSE UNKNOWN BY REPORTER
     Route: 048
  3. DEPAKENE [Suspect]
     Active Substance: VALPROIC ACID
     Indication: DEPRESSION
     Dosage: DOSE IS UNKNOWN BY REPORTER
     Route: 048
  4. SERTRALINE [Concomitant]
     Active Substance: SERTRALINE HYDROCHLORIDE
     Indication: PRODUCT USED FOR UNKNOWN INDICATION
     Dosage: DOSE UNKNOWN BY REPORTER
     Route: 048
  5. DIAZEPAM. [Concomitant]
     Active Substance: DIAZEPAM
     Indication: PRODUCT USED FOR UNKNOWN INDICATION
     Dosage: IT IS A MEDICATION OF PATIENT^S MOTHER, BUT THE PATIENT HAS TAKEN IT
     Route: 048

REACTIONS (11)
  - Contusion [Not Recovered/Not Resolved]
  - Suicide attempt [Not Recovered/Not Resolved]
  - Blood pressure decreased [Recovered/Resolved]
  - Poisoning [Unknown]
  - Product use in unapproved indication [Unknown]
  - Intentional overdose [Not Recovered/Not Resolved]
  - Wheezing [Unknown]
  - Blister [Not Recovered/Not Resolved]
  - Off label use [Unknown]
  - Pyrexia [Unknown]
  - Product storage error [Unknown]

NARRATIVE: CASE EVENT DATE: 20200104
